FAERS Safety Report 21659797 (Version 2)
Quarter: 2022Q4

REPORT INFORMATION
  Report Type: Spontaneous
  Country: ES (occurrence: ES)
  Receive Date: 20221129
  Receipt Date: 20221215
  Transmission Date: 20230113
  Serious: Yes (Other)
  Sender: FDA-Public Use
  Company Number: ES-ASTELLAS-2022US041926

PATIENT
  Age: 67 Year
  Sex: Male

DRUGS (2)
  1. ENZALUTAMIDE [Suspect]
     Active Substance: ENZALUTAMIDE
     Indication: Hormone-dependent prostate cancer
     Dosage: 160 MG, ONCE DAILY (FOUR 40 MG CAPSULES)
     Route: 048
     Dates: start: 202110
  2. Decapeptyl [Concomitant]
     Indication: Hormone-dependent prostate cancer
     Dosage: UNK UNK, UNKNOWN FREQ. (SEMIANNUALLY)
     Route: 030
     Dates: start: 202110

REACTIONS (2)
  - Fatigue [Recovering/Resolving]
  - Malignant neoplasm progression [Not Recovered/Not Resolved]

NARRATIVE: CASE EVENT DATE: 20211001
